FAERS Safety Report 10207989 (Version 1)
Quarter: 2014Q2

REPORT INFORMATION
  Report Type: Spontaneous
  Country: US (occurrence: US)
  Receive Date: 20140530
  Receipt Date: 20140530
  Transmission Date: 20141212
  Serious: No
  Sender: FDA-Public Use
  Company Number: US-GLAXOSMITHKLINE-A1067503A

PATIENT
  Sex: Female

DRUGS (5)
  1. VENTOLIN [Suspect]
     Indication: ASTHMA
     Dosage: 2PUFF AS REQUIRED
     Route: 055
     Dates: start: 2004
  2. SINGULAIR [Concomitant]
  3. GLIPIZIDE + METFORMIN [Concomitant]
  4. XOPENEX [Concomitant]
  5. ONE A DAY [Concomitant]

REACTIONS (1)
  - Drug administration error [Unknown]
